FAERS Safety Report 21487175 (Version 1)
Quarter: 2022Q4

REPORT INFORMATION
  Report Type: Report from Study
  Country: US (occurrence: US)
  Receive Date: 20221020
  Receipt Date: 20221020
  Transmission Date: 20230113
  Serious: Yes (Other)
  Sender: FDA-Public Use
  Company Number: US-NOVARTISTESTPH-NVSC2022US234178

PATIENT
  Age: 67 Year
  Sex: Male

DRUGS (3)
  1. PLUVICTO [Suspect]
     Active Substance: LUTETIUM LU-177 VIPIVOTIDE TETRAXETAN
     Indication: Hormone-refractory prostate cancer
     Dosage: UNK (FIRST DOSE RECEIVED)
     Route: 065
     Dates: start: 20220830
  2. PLUVICTO [Suspect]
     Active Substance: LUTETIUM LU-177 VIPIVOTIDE TETRAXETAN
     Dosage: UNK (SECOND DOSE RECEIVED)
     Route: 065
     Dates: start: 20221012
  3. LUPRON [Suspect]
     Active Substance: LEUPROLIDE ACETATE
     Indication: Prostate cancer
     Dosage: UNK
     Route: 065

REACTIONS (11)
  - Hormone-refractory prostate cancer [Unknown]
  - Malignant neoplasm progression [Unknown]
  - Malaise [Unknown]
  - Asthenia [Unknown]
  - Exposure to radiation [Unknown]
  - Loss of libido [Unknown]
  - Nausea [Unknown]
  - Haemoglobin decreased [Unknown]
  - Anaemia [Unknown]
  - Fatigue [Unknown]
  - Headache [Unknown]
